FAERS Safety Report 9131259 (Version 1)
Quarter: 2013Q1

REPORT INFORMATION
  Report Type: Spontaneous
  Country: US (occurrence: US)
  Receive Date: 20130301
  Receipt Date: 20130301
  Transmission Date: 20140127
  Serious: No
  Sender: FDA-Public Use
  Company Number: US-009507513-1303USA000035

PATIENT
  Age: 55 Year
  Sex: Male

DRUGS (3)
  1. VICTRELIS [Suspect]
     Indication: HEPATITIS C
     Dosage: 800 MG, TID
     Route: 048
     Dates: start: 20130211
  2. RIBAPAK [Suspect]
     Indication: HEPATITIS C
     Dosage: UNK
     Dates: start: 20130116
  3. PEGASYS [Suspect]
     Indication: HEPATITIS C
     Dosage: UNK
     Dates: start: 20130116

REACTIONS (3)
  - Headache [Not Recovered/Not Resolved]
  - Rash [Recovered/Resolved]
  - Nausea [Not Recovered/Not Resolved]
